FAERS Safety Report 5301495-1 (Version None)
Quarter: 2007Q2

REPORT INFORMATION
  Report Type: 
  Country: None (occurrence: None)
  Receive Date: 20070412
  Receipt Date: 20070402
  Transmission Date: 20071010
  Serious: Yes (Death)
  Sender: FDA-Public Use
  Company Number: 20073681

PATIENT
  Sex: Male

DRUGS (7)
  1. LIORESAL [Suspect]
     Indication: MUSCLE SPASTICITY
     Dosage: 90-95 MCG, DAILY, INTRATHECAL
     Route: 037
  2. ZANTAC [Concomitant]
  3. XOPENEX [Concomitant]
  4. PULMICORT [Concomitant]
  5. ZYRTEC [Concomitant]
  6. REGLAN [Concomitant]
  7. PREVACID [Concomitant]

REACTIONS (2)
  - ASTHENIA [None]
  - RESPIRATORY FAILURE [None]
